FAERS Safety Report 9329413 (Version 1)
Quarter: 2013Q2

REPORT INFORMATION
  Report Type: Spontaneous
  Country: US (occurrence: US)
  Receive Date: 20130604
  Receipt Date: 20130604
  Transmission Date: 20140414
  Serious: No
  Sender: FDA-Public Use
  Company Number: US-SANOFI-AVENTIS-2012SA092628

PATIENT
  Age: 85 Year
  Sex: Female

DRUGS (2)
  1. LANTUS [Suspect]
     Indication: DIABETES MELLITUS
     Dosage: PRODUCT START DATE MENTIONED AS 2 WEEKS AGO DOSE:15 UNIT(S)
     Route: 058
     Dates: start: 201211
  2. NOVOLOG [Suspect]
     Indication: DIABETES MELLITUS
     Dosage: SLIDING SCALE
     Route: 065

REACTIONS (2)
  - Nasopharyngitis [Not Recovered/Not Resolved]
  - Blood glucose decreased [Not Recovered/Not Resolved]
